FAERS Safety Report 17033673 (Version 1)
Quarter: 2019Q4

REPORT INFORMATION
  Report Type: Report from Study
  Country: US (occurrence: US)
  Receive Date: 20191114
  Receipt Date: 20191114
  Transmission Date: 20200122
  Serious: Yes (Other)
  Sender: FDA-Public Use
  Company Number: US-JNJFOC-20190618716

PATIENT
  Age: 72 Year
  Sex: Male

DRUGS (5)
  1. IBRUTINIB [Suspect]
     Active Substance: IBRUTINIB
     Dosage: 280 MG, QD
     Route: 048
     Dates: start: 20190630
  2. XARELTO [Suspect]
     Active Substance: RIVAROXABAN
     Indication: CARDIAC DISORDER
     Route: 048
  3. IBRUTINIB [Suspect]
     Active Substance: IBRUTINIB
     Dosage: 280 MG, QD
     Route: 048
     Dates: start: 20190607, end: 20190711
  4. IBRUTINIB [Suspect]
     Active Substance: IBRUTINIB
     Indication: CHRONIC LYMPHOCYTIC LEUKAEMIA
     Dosage: 280 MG, QD
     Route: 048
     Dates: start: 20190528
  5. IBRUTINIB [Suspect]
     Active Substance: IBRUTINIB
     Dosage: UNK
     Route: 065
     Dates: start: 2019

REACTIONS (21)
  - Procedural pain [Not Recovered/Not Resolved]
  - Fatigue [Unknown]
  - Epistaxis [Unknown]
  - Aphthous ulcer [Unknown]
  - Post procedural haemorrhage [Recovering/Resolving]
  - Weight decreased [Unknown]
  - White blood cell count decreased [Recovering/Resolving]
  - Incorrect dose administered [Unknown]
  - Platelet count abnormal [Recovering/Resolving]
  - Adverse drug reaction [Unknown]
  - Oral contusion [Unknown]
  - Haematuria [Unknown]
  - Blood pressure abnormal [Unknown]
  - Ear haemorrhage [Unknown]
  - Lip injury [Unknown]
  - Arthralgia [Unknown]
  - Myalgia [Unknown]
  - Off label use [Unknown]
  - Tooth fracture [Not Recovered/Not Resolved]
  - Impaired healing [Unknown]
  - Haemoptysis [Unknown]

NARRATIVE: CASE EVENT DATE: 2019
